FAERS Safety Report 14262729 (Version 2)
Quarter: 2018Q1

REPORT INFORMATION
  Report Type: Report from Study
  Country: US (occurrence: US)
  Receive Date: 20171208
  Receipt Date: 20180123
  Transmission Date: 20180508
  Serious: Yes (Other)
  Sender: FDA-Public Use
  Company Number: US-PFIZER INC-2017252024

PATIENT
  Age: 59 Year
  Sex: Female
  Weight: 50.8 kg

DRUGS (7)
  1. IBRANCE [Suspect]
     Active Substance: PALBOCICLIB
     Indication: BREAST CANCER METASTATIC
     Dosage: 125 MG, CYCLIC (21 DAYS ON AND CUSTOM DAYS OFF), (HER BREAK WAS 10 DAYS)
     Route: 048
     Dates: start: 20170601, end: 20170628
  2. IBRANCE [Suspect]
     Active Substance: PALBOCICLIB
     Dosage: 125 MG, 1X/DAY
     Route: 048
     Dates: start: 20170702
  3. IBRANCE [Suspect]
     Active Substance: PALBOCICLIB
     Dosage: 100 MG, UNK
  4. IBRANCE [Suspect]
     Active Substance: PALBOCICLIB
     Dosage: UNK, CYCLIC, (SECOND CYCLE, HER BREAK WAS TWO WEEKS)
  5. IBRANCE [Suspect]
     Active Substance: PALBOCICLIB
     Dosage: 125MG, CYCLIC (ONCE A DAY FOR 21 DAYS AND 7 DAYS OFF)
     Route: 048
     Dates: end: 201710
  6. XGEVA [Concomitant]
     Active Substance: DENOSUMAB
     Indication: BREAST CANCER
     Dosage: 125 MG, MONTHLY
     Dates: start: 20170601
  7. FASLODEX [Concomitant]
     Active Substance: FULVESTRANT
     Indication: BREAST CANCER
     Dosage: 500 MG, MONTHLY (TWO 250MG INJECTIONS INTO EACH GLUTE)
     Dates: start: 20170601

REACTIONS (18)
  - Pain in extremity [Recovering/Resolving]
  - Burning sensation [Unknown]
  - Gait disturbance [Recovered/Resolved]
  - Neuropathy peripheral [Not Recovered/Not Resolved]
  - Decreased appetite [Unknown]
  - Skin burning sensation [Unknown]
  - Erythema [Recovered/Resolved]
  - Weight decreased [Unknown]
  - Alopecia [Unknown]
  - Fatigue [Unknown]
  - Dry skin [Unknown]
  - Paraesthesia [Unknown]
  - Skin exfoliation [Recovering/Resolving]
  - Dyspepsia [Recovered/Resolved]
  - Stomatitis [Recovered/Resolved]
  - Thrombosis [Recovering/Resolving]
  - Contusion [Unknown]
  - White blood cell count decreased [Unknown]

NARRATIVE: CASE EVENT DATE: 201706
